FAERS Safety Report 5516848-6 (Version None)
Quarter: 2007Q4

REPORT INFORMATION
  Report Type: 
  Country: None (occurrence: None)
  Receive Date: 20071109
  Receipt Date: 20071025
  Transmission Date: 20080405
  Serious: Yes (Death)
  Sender: FDA-Public Use
  Company Number: 2007S1011059

PATIENT
  Sex: Female

DRUGS (1)
  1. TERBINAFINE (TERBINAFNE) [Suspect]
     Indication: ONYCHOMYCOSIS

REACTIONS (4)
  - ARTHRITIS [None]
  - CUTANEOUS LUPUS ERYTHEMATOSUS [None]
  - LEUKOPENIA [None]
  - MYOCARDIAL INFARCTION [None]
